FAERS Safety Report 7236631-3 (Version None)
Quarter: 2011Q1

REPORT INFORMATION
  Report Type: 
  Country: None (occurrence: None)
  Receive Date: 20110120
  Receipt Date: 20110110
  Transmission Date: 20110831
  Serious: No
  Sender: FDA-Public Use
  Company Number: US-B.I. PHARMACEUTICALS,INC./RIDGEFIELD-2011-BP-00201BP

PATIENT
  Sex: Male

DRUGS (10)
  1. DARVOCET [Concomitant]
     Indication: RHEUMATOID ARTHRITIS
  2. METHOTREXATE [Concomitant]
     Indication: RHEUMATOID ARTHRITIS
  3. COREG [Concomitant]
     Indication: CARDIAC DISORDER
  4. DIOVAN [Concomitant]
     Indication: CARDIAC DISORDER
  5. PREDNISONE [Concomitant]
     Indication: RHEUMATOID ARTHRITIS
  6. FOSAMAX [Concomitant]
     Indication: OSTEOPOROSIS
  7. FOLIC ACID [Concomitant]
     Indication: PROPHYLAXIS
  8. LODINE [Concomitant]
     Indication: RHEUMATOID ARTHRITIS
  9. PRADAXA [Suspect]
     Indication: ANTICOAGULANT THERAPY
     Dosage: 300 MG
     Route: 048
     Dates: start: 20101201
  10. HYDROCHLOROTHIAZIDE [Concomitant]
     Indication: RHEUMATOID ARTHRITIS

REACTIONS (1)
  - OEDEMA PERIPHERAL [None]
